FAERS Safety Report 15267638 (Version 2)
Quarter: 2021Q1

REPORT INFORMATION
  Report Type: Report from Study
  Country: US (occurrence: US)
  Receive Date: 20180811
  Receipt Date: 20210310
  Transmission Date: 20210419
  Serious: No
  Sender: FDA-Public Use
  Company Number: PHEH2018US033220

PATIENT
  Age: 61 Year
  Sex: Male

DRUGS (1)
  1. GILENYA [Suspect]
     Active Substance: FINGOLIMOD HYDROCHLORIDE
     Indication: PRODUCT USED FOR UNKNOWN INDICATION
     Dosage: UNK
     Route: 065
     Dates: start: 20170206

REACTIONS (5)
  - Feeling abnormal [Unknown]
  - Temperature intolerance [Unknown]
  - Drug monitoring procedure not performed [Unknown]
  - Gait disturbance [Unknown]
  - Malaise [Unknown]

NARRATIVE: CASE EVENT DATE: 20180601
